FAERS Safety Report 9128719 (Version 2)
Quarter: 2013Q1

REPORT INFORMATION
  Report Type: Spontaneous
  Country: HU (occurrence: HU)
  Receive Date: 20130228
  Receipt Date: 20130322
  Transmission Date: 20140127
  Serious: Yes (Hospitalization)
  Sender: FDA-Public Use
  Company Number: HU-ELI_LILLY_AND_COMPANY-HU201302007141

PATIENT
  Age: 70 Year
  Sex: Male

DRUGS (3)
  1. ZYPADHERA [Suspect]
     Indication: SCHIZOPHRENIA
     Dosage: 300 MG, MONTHLY (1/M)
     Route: 030
  2. FRONTIN [Concomitant]
     Dosage: 0.5 MG, TID
  3. NEUROTOP [Concomitant]
     Dosage: 300 MG, QD

REACTIONS (4)
  - Syncope [Recovered/Resolved]
  - Pallor [Recovered/Resolved]
  - Hyperhidrosis [Recovered/Resolved]
  - Disorientation [Recovered/Resolved]
